FAERS Safety Report 8785909 (Version 2)
Quarter: 2012Q4

REPORT INFORMATION
  Report Type: 
  Country: US (occurrence: US)
  Receive Date: 20120914
  Receipt Date: 20121015
  Transmission Date: 20130627
  Serious: Yes (Death)
  Sender: FDA-Public Use
  Company Number: US-ROCHE-1127581

PATIENT
  Sex: Female

DRUGS (1)
  1. AVASTIN [Suspect]
     Indication: ASTROCYTOMA
     Route: 042
     Dates: start: 20080813, end: 20081105

REACTIONS (1)
  - Disease progression [Fatal]
